FAERS Safety Report 7977753-9 (Version None)
Quarter: 2011Q4

REPORT INFORMATION
  Report Type: 
  Country: None (occurrence: None)
  Receive Date: 20111214
  Receipt Date: 20111130
  Transmission Date: 20120403
  Serious: No
  Sender: FDA-Public Use
  Company Number: US-AMGEN-USASP2011055554

PATIENT
  Age: 69 Year
  Weight: 48.98 kg

DRUGS (10)
  1. ENBREL [Suspect]
     Indication: RHEUMATOID ARTHRITIS
     Dosage: 50 MG, QWK
     Dates: start: 20110518
  2. SIMVASTATIN [Concomitant]
  3. BUDESONIDE [Concomitant]
  4. OMEPRAZOLE [Concomitant]
  5. POTASSIUM CHLORIDE [Concomitant]
  6. MORPHINE [Concomitant]
  7. TOPIRAMATE [Concomitant]
  8. FUROSEMIDE [Concomitant]
  9. XANAX [Concomitant]
  10. LISINOPRIL [Concomitant]

REACTIONS (1)
  - OEDEMA PERIPHERAL [None]
